FAERS Safety Report 4369104-6 (Version None)
Quarter: 2004Q2

REPORT INFORMATION
  Report Type: 
  Country: None (occurrence: None)
  Receive Date: 20040527
  Receipt Date: 20040514
  Transmission Date: 20050107
  Serious: Yes (Disabling)
  Sender: FDA-Public Use
  Company Number: 2004034045

PATIENT
  Sex: Male

DRUGS (1)
  1. NORVASC [Suspect]
     Indication: HYPERTENSION

REACTIONS (4)
  - BACK DISORDER [None]
  - BLOOD PRESSURE INCREASED [None]
  - INTERVERTEBRAL DISC COMPRESSION [None]
  - SPINAL OSTEOARTHRITIS [None]
